FAERS Safety Report 8451221-2 (Version None)
Quarter: 2012Q2

REPORT INFORMATION
  Report Type: 
  Country: None (occurrence: None)
  Receive Date: 20120620
  Receipt Date: 20120227
  Transmission Date: 20120825
  Serious: No
  Sender: FDA-Public Use
  Company Number: US-VERTEX PHARMACEUTICALS INC.-AE-2012-000475

PATIENT
  Sex: Male
  Weight: 74.91 kg

DRUGS (5)
  1. INCIVEK [Suspect]
     Indication: HEPATITIS C
     Route: 048
     Dates: start: 20111229
  2. SAW PALMETTO [Concomitant]
     Route: 048
  3. RIBAVIRIN [Concomitant]
     Indication: HEPATITIS C
     Route: 048
     Dates: start: 20111229
  4. MULTI-VITAMIN [Concomitant]
     Route: 048
  5. PEGASYS [Concomitant]
     Indication: HEPATITIS C
     Route: 058
     Dates: start: 20111229

REACTIONS (4)
  - TOOTH INFECTION [None]
  - RASH ERYTHEMATOUS [None]
  - TOOTHACHE [None]
  - BLISTER [None]
